FAERS Safety Report 12494506 (Version 2)
Quarter: 2016Q3

REPORT INFORMATION
  Report Type: Spontaneous
  Country: FR (occurrence: FR)
  Receive Date: 20160624
  Receipt Date: 20160802
  Transmission Date: 20161109
  Serious: Yes (Death)
  Sender: FDA-Public Use
  Company Number: FR-ROCHE-1780786

PATIENT
  Sex: Male

DRUGS (5)
  1. MABTHERA [Suspect]
     Active Substance: RITUXIMAB
     Indication: PULMONARY FIBROSIS
     Route: 042
  2. MABTHERA [Suspect]
     Active Substance: RITUXIMAB
     Dosage: WEEK 4
     Route: 042
     Dates: start: 20151228
  3. MABTHERA [Suspect]
     Active Substance: RITUXIMAB
     Indication: ANTINEUTROPHIL CYTOPLASMIC ANTIBODY POSITIVE
     Dosage: WEEK 1
     Route: 042
     Dates: start: 20151202
  4. MABTHERA [Suspect]
     Active Substance: RITUXIMAB
     Dosage: WEEK 2
     Route: 042
     Dates: start: 20151209
  5. MABTHERA [Suspect]
     Active Substance: RITUXIMAB
     Dosage: WEEK 3
     Route: 042
     Dates: start: 20151217

REACTIONS (2)
  - Acute hepatitis B [Fatal]
  - Off label use [Unknown]
